FAERS Safety Report 25741789 (Version 1)
Quarter: 2025Q3

REPORT INFORMATION
  Report Type: Spontaneous
  Country: US (occurrence: US)
  Receive Date: 20250829
  Receipt Date: 20250829
  Transmission Date: 20251020
  Serious: No
  Sender: SANOFI AVENTIS
  Company Number: US-SA-2025SA253649

PATIENT
  Age: 73 Year
  Sex: Male

DRUGS (3)
  1. DUPIXENT [Suspect]
     Active Substance: DUPILUMAB
     Indication: Dermatitis atopic
     Dosage: 300 MG, QOW
     Route: 058
     Dates: start: 20250610
  2. HYDROCORTISONE [Concomitant]
     Active Substance: HYDROCORTISONE
  3. PREDNISONE [Concomitant]
     Active Substance: PREDNISONE

REACTIONS (7)
  - Urinary tract infection [Unknown]
  - Diarrhoea [Unknown]
  - Fatigue [Unknown]
  - Dehydration [Unknown]
  - Eczema [Unknown]
  - Erythema [Unknown]
  - Pruritus [Unknown]

NARRATIVE: CASE EVENT DATE: 20250801
